FAERS Safety Report 24556486 (Version 1)
Quarter: 2024Q4

REPORT INFORMATION
  Report Type: Spontaneous
  Country: US (occurrence: US)
  Receive Date: 20241028
  Receipt Date: 20241028
  Transmission Date: 20250115
  Serious: No
  Sender: PFIZER
  Company Number: US-PFIZER INC-202400286786

PATIENT
  Age: 69 Year
  Sex: Male

DRUGS (1)
  1. INLYTA [Suspect]
     Active Substance: AXITINIB
     Dosage: 5 MG, 1X/DAY (1 TABLET EVERY 24 HOURS WITH PLENTY WATER)
     Route: 048

REACTIONS (4)
  - Weight decreased [Unknown]
  - Renal disorder [Unknown]
  - Intentional product misuse [Unknown]
  - Off label use [Unknown]
